FAERS Safety Report 9783995 (Version 1)
Quarter: 2013Q4

REPORT INFORMATION
  Report Type: Spontaneous
  Country: CH (occurrence: CH)
  Receive Date: 20131226
  Receipt Date: 20131226
  Transmission Date: 20140711
  Serious: Yes (Hospitalization)
  Sender: FDA-Public Use
  Company Number: CH-PFIZER INC-2013363836

PATIENT
  Age: 54 Year
  Sex: Male

DRUGS (32)
  1. SOLU-MEDROL [Suspect]
     Indication: PROPHYLAXIS
     Dosage: 80 MG, 1X/DAY
     Route: 041
     Dates: start: 20131129, end: 20131201
  2. DIFLUCAN [Suspect]
     Indication: PROPHYLAXIS
     Dosage: 400 MG, WEEKLY
     Route: 048
     Dates: start: 20131121
  3. PANTOZOL [Suspect]
     Indication: PROPHYLAXIS
     Dosage: 40 MG, 1X/DAY
     Route: 048
     Dates: start: 20131122
  4. CEFEPIME HCL [Suspect]
     Indication: BACTERIAL INFECTION
     Dosage: 2 G, 3X/DAY
     Route: 041
     Dates: start: 20131128, end: 20131205
  5. BUSILVEX [Suspect]
     Indication: PROPHYLAXIS
     Dosage: 64 MG, 4X/DAY
     Route: 041
     Dates: start: 20131128, end: 20131201
  6. ATG FRESENIUS [Suspect]
     Indication: PROPHYLAXIS
     Dosage: 400 MG, DAILY
     Route: 041
     Dates: start: 20131129, end: 20131129
  7. ATG FRESENIUS [Suspect]
     Dosage: 800 MG, DAILY
     Route: 041
     Dates: start: 20131130, end: 20131130
  8. ATG FRESENIUS [Suspect]
     Dosage: 1600 MG, 1X/DAY
     Route: 041
     Dates: start: 20131201, end: 20131201
  9. ENDOXAN [Suspect]
     Indication: PROPHYLAXIS
     Dosage: 4800 MG, 1X/DAY
     Route: 041
     Dates: start: 20131126, end: 20131127
  10. AMIKIN [Suspect]
     Indication: INFECTION
     Dosage: 1 G, 1X/DAY
     Route: 041
     Dates: start: 20131128, end: 20131130
  11. SULFAMETHOXAZOLE\TRIMETHOPRIM [Suspect]
     Indication: PROPHYLAXIS
     Dosage: 1 DF, Q3WEEKS
     Route: 048
     Dates: start: 20131122
  12. VALTREX [Suspect]
     Indication: PROPHYLAXIS
     Dosage: 500 MG, 2X/DAY
     Route: 048
     Dates: start: 20131121
  13. LASIX [Suspect]
     Indication: DIURETIC THERAPY
     Dosage: 1 DF, PRN
     Route: 041
     Dates: start: 20131126, end: 20131202
  14. ZYLORIC [Suspect]
     Indication: GOUT
     Dosage: 300 MG, 1X/DAY
     Route: 048
     Dates: start: 20131121, end: 20131203
  15. ALOXI [Suspect]
     Indication: NAUSEA
     Dosage: 0.25 MG, 1X/DAY
     Route: 041
     Dates: start: 20131126, end: 20131126
  16. ALOXI [Suspect]
     Indication: VOMITING
  17. UROMITEXAN [Suspect]
     Indication: PROPHYLAXIS
     Dosage: 12 DF, SINGLE
     Route: 041
     Dates: start: 20131126, end: 20131126
  18. UROMITEXAN [Suspect]
     Dosage: 12 DF, SINGLE
     Route: 041
     Dates: start: 20131127, end: 20131127
  19. UROMITEXAN [Suspect]
     Dosage: 5 DF, SINGLE
     Route: 041
     Dates: start: 20131128, end: 20131128
  20. EMEND [Suspect]
     Indication: NAUSEA
     Dosage: 125 MG, 1X/DAY
     Route: 041
     Dates: start: 20131126, end: 20131126
  21. EMEND [Suspect]
     Indication: VOMITING
     Dosage: 80 MG, 1X/DAY
     Route: 041
     Dates: start: 20131127, end: 20131203
  22. SANDIMMUN [Concomitant]
     Indication: PROPHYLAXIS
     Dosage: 225 MG, 1X/DAY
     Route: 041
     Dates: start: 20131201, end: 20131203
  23. SANDIMMUN [Concomitant]
     Dosage: 300 MG, 1X/DAY
     Route: 041
     Dates: start: 20131204, end: 20131205
  24. SOLU-CORTEF [Concomitant]
     Dosage: UNK
     Dates: start: 20131204, end: 20131204
  25. FORTECORTIN [Concomitant]
     Dosage: UNK
     Route: 042
     Dates: start: 20131126, end: 20131129
  26. FORTECORTIN [Concomitant]
     Dosage: UNK
     Route: 042
     Dates: start: 20131205, end: 20131205
  27. TAVEGYL [Concomitant]
     Dosage: UNK
     Route: 042
     Dates: start: 20131129, end: 20131201
  28. TAVEGYL [Concomitant]
     Dosage: UNK
     Route: 042
     Dates: start: 20131204, end: 20131204
  29. PASPERTIN [Concomitant]
     Dosage: UNK
     Route: 042
     Dates: start: 20131127, end: 20131127
  30. HEPARIN [Concomitant]
     Dosage: UNK
     Route: 042
     Dates: start: 20131126
  31. URSOFALK [Concomitant]
     Dosage: 250 MG, 3X/DAY
     Route: 048
     Dates: start: 20131126
  32. TAZOBAC [Concomitant]
     Dosage: UNK
     Route: 042
     Dates: start: 20131205, end: 20131206

REACTIONS (4)
  - Jaundice [Recovering/Resolving]
  - Hyperbilirubinaemia [Recovering/Resolving]
  - Hepatic enzyme increased [Recovering/Resolving]
  - Haemolysis [Unknown]
